FAERS Safety Report 26146441 (Version 2)
Quarter: 2025Q4

REPORT INFORMATION
  Report Type: Spontaneous
  Country: EU (occurrence: EU)
  Receive Date: 20251211
  Receipt Date: 20251217
  Transmission Date: 20260118
  Serious: Yes (Hospitalization)
  Sender: BIOMARIN
  Company Number: EU-SA-2025SA303327

PATIENT
  Age: 13 Year
  Sex: Male

DRUGS (2)
  1. LARONIDASE [Suspect]
     Active Substance: LARONIDASE
     Indication: Mucopolysaccharidosis I
     Dosage: 5 DF, QW
     Dates: start: 20140717, end: 20250930
  2. LARONIDASE [Suspect]
     Active Substance: LARONIDASE
     Dosage: 5 DF, QW
     Dates: start: 2025, end: 20251125

REACTIONS (4)
  - Hospitalisation [Recovered/Resolved]
  - Influenza [Recovering/Resolving]
  - Pyrexia [Recovered/Resolved]
  - Cough [Unknown]

NARRATIVE: CASE EVENT DATE: 20251006
